FAERS Safety Report 9832339 (Version 3)
Quarter: 2015Q2

REPORT INFORMATION
  Report Type: Spontaneous
  Country: US (occurrence: US)
  Receive Date: 20140121
  Receipt Date: 20150503
  Transmission Date: 20150821
  Serious: Yes (Death, Hospitalization, Other)
  Sender: FDA-Public Use
  Company Number: US-009507513-1401USA007779

PATIENT
  Sex: Female
  Weight: 113.38 kg

DRUGS (1)
  1. JANUVIA [Suspect]
     Active Substance: SITAGLIPTIN PHOSPHATE
     Indication: TYPE 2 DIABETES MELLITUS
     Dosage: 50 MG, BID
     Route: 048
     Dates: start: 20100712, end: 20120307

REACTIONS (8)
  - Chemotherapy [Unknown]
  - Death [Fatal]
  - Nausea [Unknown]
  - Radiotherapy [Unknown]
  - Central venous catheterisation [Unknown]
  - Abdominal pain [Unknown]
  - Gallbladder operation [Unknown]
  - Pancreatic carcinoma [Unknown]

NARRATIVE: CASE EVENT DATE: 2011
